FAERS Safety Report 4496303-5 (Version None)
Quarter: 2004Q3

REPORT INFORMATION
  Report Type: 
  Country: None (occurrence: None)
  Receive Date: 20040921
  Receipt Date: 20040315
  Transmission Date: 20050211
  Serious: Yes (Hospitalization)
  Sender: FDA-Public Use
  Company Number: 163-20785-04030335 (0)

PATIENT
  Age: 70 Year
  Sex: Male

DRUGS (21)
  1. THALOMID [Suspect]
     Indication: WALDENSTROM'S MACROGLOBULINAEMIA
     Dosage: ORAL
     Route: 048
     Dates: start: 20040113, end: 20040101
  2. THALOMID [Suspect]
     Indication: LYMPHOPLASMACYTOID LYMPHOMA/IMMUNOCYTOMA
     Dosage: ORAL
     Route: 048
     Dates: start: 20040314, end: 20040301
  3. G-CSF (GRANULOCYTE COLONY STIMULATING FACTOR) [Suspect]
     Indication: WALDENSTROM'S MACROGLOBULINAEMIA
     Dates: start: 20040206, end: 20040201
  4. G-CSF (GRANULOCYTE COLONY STIMULATING FACTOR) [Suspect]
     Indication: LYMPHOPLASMACYTOID LYMPHOMA/IMMUNOCYTOMA
  5. DEXAMETHASONE [Suspect]
     Indication: WALDENSTROM'S MACROGLOBULINAEMIA
     Dates: start: 20040113, end: 20040101
  6. DEXAMETHASONE [Suspect]
     Indication: LYMPHOPLASMACYTOID LYMPHOMA/IMMUNOCYTOMA
     Dates: start: 20040314, end: 20040301
  7. CISPLATIN [Suspect]
     Indication: WALDENSTROM'S MACROGLOBULINAEMIA
     Dates: start: 20040113, end: 20040101
  8. CISPLATIN [Suspect]
     Indication: LYMPHOPLASMACYTOID LYMPHOMA/IMMUNOCYTOMA
     Dates: start: 20040314, end: 20040301
  9. CYCLOPHOSPHAMIDE [Suspect]
     Indication: WALDENSTROM'S MACROGLOBULINAEMIA
     Dates: start: 20040113, end: 20040101
  10. CYCLOPHOSPHAMIDE [Suspect]
     Indication: LYMPHOPLASMACYTOID LYMPHOMA/IMMUNOCYTOMA
     Dates: start: 20040314, end: 20040301
  11. ETOPOSIDE [Suspect]
     Indication: WALDENSTROM'S MACROGLOBULINAEMIA
     Dates: start: 20040113, end: 20040101
  12. ETOPOSIDE [Suspect]
     Indication: LYMPHOPLASMACYTOID LYMPHOMA/IMMUNOCYTOMA
     Dates: start: 20040314, end: 20040301
  13. ACYLOVIR (ACICLOVIR) [Concomitant]
  14. PROTONIX [Concomitant]
  15. SYNTHROID [Concomitant]
  16. LOVENOX [Concomitant]
  17. CALCIUM (CALCIUM) [Concomitant]
  18. MULTIVITAMIN [Concomitant]
  19. FOLIC ACID [Concomitant]
  20. REGLAN [Concomitant]
  21. ARANESP [Concomitant]

REACTIONS (6)
  - ASCITES INFECTION [None]
  - HYPOALBUMINAEMIA [None]
  - PERITONITIS BACTERIAL [None]
  - SPLENIC INFARCTION [None]
  - SUBDIAPHRAGMATIC ABSCESS [None]
  - THROMBOCYTOPENIA [None]
